FAERS Safety Report 4653435-6 (Version None)
Quarter: 2005Q2

REPORT INFORMATION
  Report Type: 
  Country: None (occurrence: None)
  Receive Date: 20050503
  Receipt Date: 20050421
  Transmission Date: 20051028
  Serious: Yes (Other)
  Sender: FDA-Public Use
  Company Number: 2005057331

PATIENT
  Age: 24 Year
  Sex: Female
  Weight: 68 kg

DRUGS (4)
  1. CLINDAMYCIN HYDROCHLORIDE [Suspect]
     Indication: SINUSITIS
     Dosage: 900 MG (300 MG, 3 IN 1 D), ORAL
     Route: 048
     Dates: start: 20050323, end: 20050327
  2. ALL OTHER THERAPEUTIC PRODUCTS (ALL OTHER THERAPEUTIC PRODUCTS) [Concomitant]
  3. MESNA [Concomitant]
  4. OXYMETAZOLINE HYDROCHLORIDE (OXYMETAZOLINE HYDROCHLORIDE) [Concomitant]

REACTIONS (1)
  - HEPATITIS TOXIC [None]
